FAERS Safety Report 19472441 (Version 2)
Quarter: 2021Q3

REPORT INFORMATION
  Report Type: Report from Study
  Country: US (occurrence: US)
  Receive Date: 20210629
  Receipt Date: 20210809
  Transmission Date: 20211014
  Serious: No
  Sender: FDA-Public Use
  Company Number: NVSC2021US140053

PATIENT
  Sex: Female
  Weight: 63.49 kg

DRUGS (3)
  1. SILDENAFIL CITRATE. [Concomitant]
     Active Substance: SILDENAFIL CITRATE
     Indication: PRODUCT USED FOR UNKNOWN INDICATION
     Dosage: UNK
     Route: 065
  2. TREPROSTINIL. [Suspect]
     Active Substance: TREPROSTINIL
     Indication: PULMONARY ARTERIAL HYPERTENSION
     Dosage: UNK (16 NG/KG/MIN)
     Route: 058
     Dates: start: 20210607
  3. TREPROSTINIL. [Suspect]
     Active Substance: TREPROSTINIL
     Dosage: UNK (29 NG/KG/MIN)
     Route: 058
     Dates: start: 20210607

REACTIONS (4)
  - Dysmenorrhoea [Unknown]
  - Injection site pain [Unknown]
  - Dyspnoea exertional [Unknown]
  - Pain in jaw [Unknown]
